FAERS Safety Report 15598405 (Version 1)
Quarter: 2018Q4

REPORT INFORMATION
  Report Type: Spontaneous
  Country: US (occurrence: US)
  Receive Date: 20181109
  Receipt Date: 20181109
  Transmission Date: 20190205
  Serious: Yes (Life-Threatening, Hospitalization)
  Sender: FDA-Public Use
  Company Number: None

PATIENT

DRUGS (1)
  1. METAXALONE 800MG TABLET [Suspect]
     Active Substance: METAXALONE

REACTIONS (14)
  - Erythema [None]
  - Ocular hyperaemia [None]
  - Rash [None]
  - Respiratory distress [None]
  - Swelling face [None]
  - Pyrexia [None]
  - Eye swelling [None]
  - Mucosal inflammation [None]
  - Mucosal erosion [None]
  - Stomatitis [None]
  - Visual impairment [None]
  - Dehydration [None]
  - Renal disorder [None]
  - Ulcerative keratitis [None]

NARRATIVE: CASE EVENT DATE: 20181109
